FAERS Safety Report 23393134 (Version 5)
Quarter: 2025Q1

REPORT INFORMATION
  Report Type: Spontaneous
  Country: US (occurrence: US)
  Receive Date: 20240111
  Receipt Date: 20250312
  Transmission Date: 20250408
  Serious: No
  Sender: SANOFI AVENTIS
  Company Number: US-SA-SAC20240105001072

PATIENT
  Age: 62 Year
  Sex: Female

DRUGS (2)
  1. DUPIXENT [Suspect]
     Active Substance: DUPILUMAB
     Indication: Dermatitis atopic
     Dosage: 300 MG, QOW
     Route: 058
     Dates: start: 202308
  2. VALSARTAN [Concomitant]
     Active Substance: VALSARTAN

REACTIONS (9)
  - Mental disorder [Unknown]
  - General physical condition abnormal [Unknown]
  - Pain [Unknown]
  - Gait disturbance [Recovering/Resolving]
  - Injection site reaction [Recovering/Resolving]
  - Arthralgia [Unknown]
  - Hypersensitivity [Unknown]
  - Injection site pain [Unknown]
  - Drug ineffective [Unknown]

NARRATIVE: CASE EVENT DATE: 20240101
